FAERS Safety Report 25828565 (Version 2)
Quarter: 2025Q4

REPORT INFORMATION
  Report Type: Report from Study
  Country: GB (occurrence: None)
  Receive Date: 20250922
  Receipt Date: 20251020
  Transmission Date: 20260118
  Serious: Yes (Hospitalization, Other)
  Sender: Alvotech
  Company Number: GB-ALVOTECHPMS-2025-ALVOTECHPMS-005195

PATIENT
  Age: 78 Year
  Sex: Male

DRUGS (1)
  1. USTEKINUMAB [Suspect]
     Active Substance: USTEKINUMAB
     Indication: Crohn^s disease
     Dosage: 90MG/1ML SOLUTION FOR INJECTION PRE-FILLED SYRINGES
     Route: 058
     Dates: start: 20250617

REACTIONS (1)
  - Cerebrovascular accident [Unknown]
